FAERS Safety Report 9133399 (Version 1)
Quarter: 2013Q1

REPORT INFORMATION
  Report Type: Spontaneous
  Country: GB (occurrence: GB)
  Receive Date: 20130301
  Receipt Date: 20130301
  Transmission Date: 20140127
  Serious: Yes (Other)
  Sender: FDA-Public Use
  Company Number: PHHY2013GB018287

PATIENT
  Age: 81 Year
  Sex: Male
  Weight: 97 kg

DRUGS (20)
  1. CHLORPHENIRAMINE [Suspect]
     Dates: start: 20130212
  2. CHLORPHENIRAMINE [Suspect]
     Dosage: UNK
     Dates: start: 20130115, end: 20130129
  3. DERMOL [Concomitant]
     Dates: start: 20121024
  4. FINASTERIDE [Concomitant]
     Dates: start: 20121026
  5. SIMVASTATIN [Concomitant]
     Dates: start: 20121029
  6. TAMSULOSIN HYDROCHLORIDE [Concomitant]
     Dates: start: 20121029
  7. SERETIDE [Concomitant]
     Dates: start: 20121105
  8. SPIRIVA [Concomitant]
     Dates: start: 20121105
  9. VENTOLIN [Concomitant]
     Dates: start: 20121105
  10. FLUCLOXACILLIN [Concomitant]
     Dates: start: 20121112
  11. FUROSEMIDE [Concomitant]
     Dates: start: 20121122, end: 20121220
  12. CLARITHROMYCIN [Concomitant]
     Dates: start: 20121203
  13. TRIMETHOPRIM [Concomitant]
     Dates: start: 20121210, end: 20121217
  14. MACROGOL [Concomitant]
     Dates: start: 20121214, end: 20121224
  15. LIDOCAINE HYDROCHLORIDE [Concomitant]
     Dates: start: 20121219, end: 20121220
  16. E45 ITCH RELIEF [Concomitant]
     Dates: start: 20121231, end: 20130128
  17. BETAMETHASONE VALERATE [Concomitant]
     Dates: start: 20130102, end: 20130116
  18. IBUPROFEN [Concomitant]
     Dates: start: 20130102, end: 20130112
  19. PARACETAMOL [Concomitant]
     Dates: start: 20130102, end: 20130130
  20. EPADERM [Concomitant]
     Dates: start: 20130115, end: 20130129

REACTIONS (1)
  - Dyspnoea [Recovered/Resolved]
